FAERS Safety Report 19093637 (Version 1)
Quarter: 2021Q2

REPORT INFORMATION
  Report Type: Spontaneous
  Country: DE (occurrence: DE)
  Receive Date: 20210405
  Receipt Date: 20210405
  Transmission Date: 20210717
  Serious: Yes (Death)
  Sender: FDA-Public Use
  Company Number: DE-LUPIN PHARMACEUTICALS INC.-2021-04041

PATIENT
  Age: 80 Year
  Sex: Male

DRUGS (14)
  1. MOXIFLOXACIN. [Concomitant]
     Active Substance: MOXIFLOXACIN
     Indication: ENTEROCOCCAL INFECTION
     Dosage: 400 MILLIGRAM, QD
     Route: 048
     Dates: start: 2019
  2. AMOXICILLIN. [Concomitant]
     Active Substance: AMOXICILLIN
     Indication: ENTEROCOCCAL INFECTION
     Dosage: UNK
     Route: 065
     Dates: start: 2019
  3. AMOXICILLIN. [Concomitant]
     Active Substance: AMOXICILLIN
     Indication: BACTERAEMIA
  4. VANCOMYCIN [Concomitant]
     Active Substance: VANCOMYCIN
     Indication: ENTEROCOCCAL INFECTION
     Dosage: UNK
     Route: 042
     Dates: start: 2019
  5. MOXIFLOXACIN. [Concomitant]
     Active Substance: MOXIFLOXACIN
     Indication: BACTERAEMIA
  6. LINEZOLID. [Suspect]
     Active Substance: LINEZOLID
     Indication: ENTEROCOCCAL INFECTION
     Dosage: UNK
     Route: 065
     Dates: start: 2019
  7. LINEZOLID. [Suspect]
     Active Substance: LINEZOLID
     Indication: BACTERAEMIA
  8. RIFAMPICIN [Concomitant]
     Active Substance: RIFAMPIN
     Indication: ENTEROCOCCAL INFECTION
     Dosage: 600 MILLIGRAM, QD
     Route: 048
     Dates: start: 2019
  9. DALBAVANCIN. [Concomitant]
     Active Substance: DALBAVANCIN
     Indication: BACTERAEMIA
     Dosage: 1000 MILLIGRAM, TWICE WEEKLY
     Route: 065
     Dates: start: 201912
  10. PIPERACILLIN. [Concomitant]
     Active Substance: PIPERACILLIN SODIUM
     Indication: ENTEROCOCCAL INFECTION
     Dosage: UNK
     Route: 042
     Dates: start: 2019
  11. PIPERACILLIN. [Concomitant]
     Active Substance: PIPERACILLIN SODIUM
     Indication: BACTERAEMIA
  12. RIFAMPICIN [Concomitant]
     Active Substance: RIFAMPIN
     Indication: BACTERAEMIA
  13. DALBAVANCIN. [Concomitant]
     Active Substance: DALBAVANCIN
     Indication: ENTEROCOCCAL INFECTION
     Dosage: 1500 MILLIGRAM, AS LOADING DOSE
     Route: 065
     Dates: start: 201912
  14. VANCOMYCIN [Concomitant]
     Active Substance: VANCOMYCIN
     Indication: BACTERAEMIA

REACTIONS (1)
  - Nausea [Unknown]

NARRATIVE: CASE EVENT DATE: 2019
